FAERS Safety Report 4376026-3 (Version None)
Quarter: 2004Q2

REPORT INFORMATION
  Report Type: 
  Country: None (occurrence: None)
  Receive Date: 20040611
  Receipt Date: 20040531
  Transmission Date: 20050107
  Serious: Yes (Death, Other)
  Sender: FDA-Public Use
  Company Number: JP-MERCK-0406USA00381

PATIENT
  Age: 67 Year
  Sex: Male

DRUGS (2)
  1. PEPCID [Suspect]
     Route: 065
     Dates: start: 20040501
  2. GENTAMICIN SULFATE [Concomitant]
     Route: 065

REACTIONS (5)
  - BLOOD PRESSURE DECREASED [None]
  - DIARRHOEA [None]
  - PLATELET COUNT DECREASED [None]
  - PYREXIA [None]
  - WHITE BLOOD CELL COUNT DECREASED [None]
